FAERS Safety Report 5850865-1 (Version None)
Quarter: 2008Q3

REPORT INFORMATION
  Report Type: 
  Country: None (occurrence: None)
  Receive Date: 20080819
  Receipt Date: 20080819
  Transmission Date: 20090109
  Serious: Yes (Other)
  Sender: FDA-Public Use
  Company Number: None

PATIENT
  Age: 1 Year
  Sex: Male
  Weight: 8.6183 kg

DRUGS (1)
  1. CEFDINIR [Suspect]
     Indication: EAR INFECTION
     Dosage: 1/2 TSP.  2TIMES DAILY PO
     Route: 048
     Dates: start: 20080812, end: 20080815

REACTIONS (2)
  - FAECES DISCOLOURED [None]
  - PHARMACEUTICAL PRODUCT COMPLAINT [None]
